FAERS Safety Report 12270856 (Version 1)
Quarter: 2016Q2

REPORT INFORMATION
  Report Type: Spontaneous
  Country: US (occurrence: US)
  Receive Date: 20160415
  Receipt Date: 20160415
  Transmission Date: 20160815
  Serious: No
  Sender: FDA-Public Use
  Company Number: US-TEVA-634654USA

PATIENT
  Sex: Female

DRUGS (1)
  1. ZECUITY [Suspect]
     Active Substance: SUMATRIPTAN SUCCINATE
     Indication: MIGRAINE
     Route: 062
     Dates: start: 20160129

REACTIONS (8)
  - Application site paraesthesia [Not Recovered/Not Resolved]
  - Adverse event [Unknown]
  - Application site erythema [Not Recovered/Not Resolved]
  - Application site pruritus [Unknown]
  - Hypersensitivity [Not Recovered/Not Resolved]
  - Device leakage [Unknown]
  - Application site reaction [Not Recovered/Not Resolved]
  - Application site rash [Unknown]

NARRATIVE: CASE EVENT DATE: 20160129
